FAERS Safety Report 23952646 (Version 1)
Quarter: 2024Q2

REPORT INFORMATION
  Report Type: Report from Study
  Country: US (occurrence: US)
  Receive Date: 20240607
  Receipt Date: 20240607
  Transmission Date: 20240716
  Serious: Yes (Other)
  Sender: FDA-Public Use
  Company Number: US-BAUSCHBL-2024BNL028173

PATIENT
  Age: 67 Year
  Sex: Male

DRUGS (1)
  1. XIIDRA [Suspect]
     Active Substance: LIFITEGRAST
     Indication: Product used for unknown indication
     Dosage: TAKING FOR YEARS
     Route: 047

REACTIONS (3)
  - Cardiac disorder [Unknown]
  - General physical health deterioration [Unknown]
  - Impaired work ability [Unknown]
